FAERS Safety Report 20922936 (Version 2)
Quarter: 2023Q2

REPORT INFORMATION
  Report Type: Spontaneous
  Country: GB (occurrence: GB)
  Receive Date: 20220607
  Receipt Date: 20230401
  Transmission Date: 20230721
  Serious: Yes (Hospitalization, Other)
  Sender: FDA-Public Use
  Company Number: GB-AstraZeneca-2022A181449

PATIENT
  Age: 72 Year
  Sex: Female

DRUGS (6)
  1. RAMIPRIL [Suspect]
     Active Substance: RAMIPRIL
     Indication: Cardiac failure
     Dosage: UNK
     Route: 048
  2. DAPAGLIFLOZIN [Suspect]
     Active Substance: DAPAGLIFLOZIN
     Indication: Cardiac failure
     Dosage: 10 MILLIGRAM, ONCE A DAY (10 MILLIGRAM (QD)
     Route: 048
     Dates: start: 20210827
  3. DIGOXIN [Suspect]
     Active Substance: DIGOXIN
     Indication: Cardiac failure
     Dosage: UNK
     Route: 048
     Dates: start: 20211029, end: 20220509
  4. BISOPROLOL [Concomitant]
     Active Substance: BISOPROLOL
     Indication: Cardiac failure
     Dosage: UNK
     Route: 048
  5. FAMOTIDINE [Concomitant]
     Active Substance: FAMOTIDINE
     Indication: Product used for unknown indication
     Dosage: UNK
     Route: 065
  6. COLCHICINE [Concomitant]
     Active Substance: COLCHICINE
     Indication: Gout
     Dosage: UNK
     Route: 048

REACTIONS (1)
  - Syncope [Recovered/Resolved]

NARRATIVE: CASE EVENT DATE: 20220504
